FAERS Safety Report 7652779-3 (Version None)
Quarter: 2011Q3

REPORT INFORMATION
  Report Type: 
  Country: None (occurrence: None)
  Receive Date: 20110803
  Receipt Date: 20110721
  Transmission Date: 20111222
  Serious: Yes (Other)
  Sender: FDA-Public Use
  Company Number: US-BAYER-201012513NA

PATIENT
  Age: 22 Year
  Sex: Female
  Weight: 66 kg

DRUGS (8)
  1. YAZ [Suspect]
     Indication: CONTRACEPTION
     Dosage: UNK
     Route: 048
     Dates: start: 20060601, end: 20070401
  2. YAZ [Suspect]
     Dosage: UNK
     Dates: start: 20070901, end: 20080501
  3. YAZ [Suspect]
     Dosage: UNK
     Dates: start: 20080701, end: 20081101
  4. YAZ [Suspect]
     Dosage: UNK
     Dates: start: 20090101, end: 20090901
  5. AMOXICILLIN [Concomitant]
  6. PROVERA [Concomitant]
     Indication: CONTRACEPTION
  7. OXYCODONE HCL [Concomitant]
     Indication: PAIN
  8. YAZ [Suspect]

REACTIONS (11)
  - DIARRHOEA [None]
  - CHOLECYSTITIS CHRONIC [None]
  - DEPRESSION [None]
  - DYSPEPSIA [None]
  - CHOLECYSTECTOMY [None]
  - CHOLELITHIASIS [None]
  - ABDOMINAL DISTENSION [None]
  - SCAR [None]
  - FLATULENCE [None]
  - CONSTIPATION [None]
  - ANXIETY [None]
